FAERS Safety Report 9813085 (Version 2)
Quarter: 2014Q4

REPORT INFORMATION
  Report Type: Spontaneous
  Country: US (occurrence: US)
  Receive Date: 20140113
  Receipt Date: 20141222
  Transmission Date: 20150529
  Serious: Yes (Hospitalization, Other)
  Sender: FDA-Public Use
  Company Number: US-SA-2014SA003955

PATIENT
  Age: 65 Year
  Sex: Male
  Weight: 102.05 kg

DRUGS (5)
  1. SOLOSTAR [Concomitant]
     Active Substance: DEVICE
     Indication: TYPE 2 DIABETES MELLITUS
  2. BYETTA [Concomitant]
     Active Substance: EXENATIDE
     Indication: HIP SURGERY
     Route: 065
     Dates: start: 2012
  3. COUMADIN [Suspect]
     Active Substance: WARFARIN SODIUM
     Route: 065
  4. LANTUS SOLOSTAR [Suspect]
     Active Substance: INSULIN GLARGINE
     Indication: TYPE 2 DIABETES MELLITUS
     Dosage: DOSE:42 UNIT(S)
     Route: 058
  5. METFORMIN [Concomitant]
     Active Substance: METFORMIN HYDROCHLORIDE
     Indication: HIP SURGERY
     Route: 065
     Dates: start: 2012

REACTIONS (5)
  - Arthropathy [Unknown]
  - Cardiac operation [Unknown]
  - Injection site haemorrhage [Unknown]
  - Pain [Unknown]
  - Glycosylated haemoglobin increased [Unknown]
